FAERS Safety Report 13603300 (Version 1)
Quarter: 2017Q2

REPORT INFORMATION
  Report Type: Report from Study
  Country: JP (occurrence: JP)
  Receive Date: 20170601
  Receipt Date: 20170601
  Transmission Date: 20170830
  Serious: Yes (Hospitalization)
  Sender: FDA-Public Use
  Company Number: JP-DSJP-DSJ-2016-139968

PATIENT

DRUGS (16)
  1. BROTIZOLAM [Concomitant]
     Active Substance: BROTIZOLAM
     Dosage: 0.25 MG, AS NEEDED
     Route: 048
     Dates: start: 20160603
  2. GOREISAN                           /08015701/ [Concomitant]
     Active Substance: HERBALS
     Dosage: 7.5G/DAY
     Route: 048
     Dates: start: 20160702
  3. SOLDEM 3A [Concomitant]
     Active Substance: CARBOHYDRATES\POTASSIUM CHLORIDE\SODIUM CHLORIDE\SODIUM LACTATE
     Dosage: 2L/DAY
     Route: 042
     Dates: start: 20160520, end: 20160613
  4. PATANOL [Concomitant]
     Active Substance: OLOPATADINE HYDROCHLORIDE
     Dosage: UNK, QID
     Route: 050
  5. LANSOPRAZOLE. [Concomitant]
     Active Substance: LANSOPRAZOLE
     Dosage: 15MG/DAY
     Route: 048
     Dates: start: 20160614
  6. HEPARIN [Concomitant]
     Active Substance: HEPARIN SODIUM
     Dosage: UNK
     Route: 065
     Dates: start: 20160519
  7. FAMOTIDINE. [Concomitant]
     Active Substance: FAMOTIDINE
     Dosage: 20MG/DAY
     Route: 042
     Dates: start: 20160705, end: 20160706
  8. TRESIBA [Concomitant]
     Active Substance: INSULIN DEGLUDEC
     Dosage: 20IU/DAY
     Route: 058
     Dates: start: 20160620
  9. HUMULIN R [Concomitant]
     Active Substance: INSULIN HUMAN
     Dosage: 50IU/DAY
     Route: 042
     Dates: start: 20160522, end: 20160714
  10. ELENTAL [Concomitant]
     Active Substance: AMINO ACIDS\CARBOHYDRATES\MINERALS\SOYBEAN OIL\VITAMINS
     Dosage: 6DF/DAY
     Route: 048
     Dates: start: 20160520, end: 20160719
  11. LIXIANA TABLETS [Suspect]
     Active Substance: EDOXABAN TOSYLATE
     Indication: PRODUCT USED FOR UNKNOWN INDICATION
     Dosage: 60MG/DAY
     Route: 048
     Dates: start: 20160620, end: 20160727
  12. SLONNON HI [Suspect]
     Active Substance: ARGATROBAN
     Indication: EMBOLISM
     Dosage: 0.7UG/KG/MIN
     Route: 041
     Dates: start: 20160607, end: 20160620
  13. OMEPRAZOLE. [Concomitant]
     Active Substance: OMEPRAZOLE
     Dosage: 40MG/DAY
     Route: 042
     Dates: start: 20160519, end: 20160613
  14. RIKKUNSHITO                        /08041001/ [Concomitant]
     Active Substance: HERBALS
     Dosage: 7.5G/DAY
     Route: 048
     Dates: start: 20160623
  15. ISOTONIC SODIUM CHLORIDE SOLUTION [Concomitant]
     Active Substance: SODIUM CHLORIDE
     Dosage: 50IU/DAY
     Route: 042
     Dates: start: 20160522, end: 20160714
  16. VITAMEDIN FOR INTRAVENOUS INJECTION [Concomitant]
     Dosage: 1DF/DAY
     Route: 042
     Dates: start: 20160603, end: 20160613

REACTIONS (6)
  - Oedema [Not Recovered/Not Resolved]
  - Impaired gastric emptying [Recovering/Resolving]
  - Cholangitis [Not Recovered/Not Resolved]
  - Liver disorder [Not Recovered/Not Resolved]
  - Subdural haematoma [Recovering/Resolving]
  - Hypertension [Recovering/Resolving]

NARRATIVE: CASE EVENT DATE: 20160618
